FAERS Safety Report 6397028-1 (Version None)
Quarter: 2009Q4

REPORT INFORMATION
  Report Type: 
  Country: None (occurrence: None)
  Receive Date: 20091012
  Receipt Date: 20090720
  Transmission Date: 20100525
  Serious: Yes (Hospitalization)
  Sender: FDA-Public Use
  Company Number: US-AVENTIS-200914101GDDC

PATIENT
  Age: 71 Year
  Sex: Male
  Weight: 80.9 kg

DRUGS (2)
  1. APIDRA [Suspect]
     Route: 042
     Dates: start: 20090408
  2. LANTUS [Suspect]
     Route: 058
     Dates: start: 20090410

REACTIONS (5)
  - ACIDOSIS [None]
  - HYPERKALAEMIA [None]
  - PERICARDIAL EFFUSION [None]
  - PERICARDITIS [None]
  - RENAL FAILURE ACUTE [None]
